FAERS Safety Report 8397446-6 (Version None)
Quarter: 2012Q2

REPORT INFORMATION
  Report Type: 
  Country: None (occurrence: None)
  Receive Date: 20120529
  Receipt Date: 20120529
  Transmission Date: 20120825
  Serious: Yes (Disabling)
  Sender: FDA-Public Use
  Company Number: None

PATIENT
  Sex: Female
  Weight: 99.7913 kg

DRUGS (1)
  1. HYDROXYCHLOROQUINE SULFATE [Suspect]
     Indication: MIXED CONNECTIVE TISSUE DISEASE
     Dosage: 200 MGS 2 X/ DAY PO
     Route: 048
     Dates: start: 20071001, end: 20120523

REACTIONS (3)
  - TOXICITY TO VARIOUS AGENTS [None]
  - DIPLOPIA [None]
  - BLINDNESS [None]
